FAERS Safety Report 7088405-4 (Version None)
Quarter: 2010Q4

REPORT INFORMATION
  Report Type: 
  Country: None (occurrence: None)
  Receive Date: 20101108
  Receipt Date: 20101101
  Transmission Date: 20110411
  Serious: Yes (Hospitalization)
  Sender: FDA-Public Use
  Company Number: US-ROCHE-715602

PATIENT
  Sex: Male
  Weight: 64.6 kg

DRUGS (21)
  1. BEVACIZUMAB [Suspect]
     Dosage: COMPLETED TWO INDUCTION CYCLES.
     Route: 042
     Dates: end: 20100406
  2. BEVACIZUMAB [Suspect]
     Dosage: CONCURRENT THERAPY
     Route: 042
     Dates: start: 20100426, end: 20100701
  3. ERLOTINIB HYDROCHLORIDE [Suspect]
     Dosage: FREQUENCY: TUESDAY  TO FRIDAY EVERY WEEK
     Route: 048
     Dates: start: 20100426, end: 20100701
  4. CARBOPLATIN [Suspect]
     Dosage: ROUTE: AS PER PROTOCOL. INDUCTION CYCLE
     Route: 042
     Dates: end: 20100406
  5. CARBOPLATIN [Suspect]
     Dosage: CONCURRENT CYCLE.
     Route: 042
     Dates: start: 20100426, end: 20100701
  6. PACLITAXEL [Suspect]
     Dosage: ROUTE: AS PER PROTOCOL. INDUCTION CYCLE
     Route: 042
     Dates: end: 20100406
  7. PACLITAXEL [Suspect]
     Dosage: CONCURRENT CYCLE.
     Route: 042
     Dates: start: 20100426, end: 20100701
  8. PROTONIX [Concomitant]
     Dosage: FREQUENCY: EVERYDAY
     Route: 048
     Dates: start: 20100514
  9. NORVASC [Concomitant]
     Dosage: FREQUENCY: EVERYDAY
     Route: 048
     Dates: start: 20100408
  10. AMBIEN [Concomitant]
     Dosage: FREQUENCY: EVERY NIGHT AS REQUIRED
     Route: 048
  11. IMODIUM [Concomitant]
     Dosage: FREQUENCY: AS REQUIRED
     Route: 048
     Dates: start: 20100506
  12. IMODIUM [Concomitant]
     Route: 048
  13. LOMOTIL [Concomitant]
     Dosage: FREQUENCY: AS REQUIRED
     Route: 048
     Dates: start: 20100516
  14. DUKES SOLUTION (LIDOCAINE, BENADRYL, KAOPECTATE, NYSTATIN) [Concomitant]
     Dates: start: 20100512
  15. FLUCONAZOLE [Concomitant]
     Dosage: FREQUENCY: EVERYDAY
     Route: 048
     Dates: start: 20100527
  16. FENTANYL [Concomitant]
  17. DILAUDID [Concomitant]
     Dosage: DOSE: 4 TO 8 MG, FREQUENCY: Q4HPRN
     Route: 048
  18. NORTRIPTYLINE [Concomitant]
     Route: 048
  19. LIDOCAINE [Concomitant]
     Dosage: LIDOCAINE MAGIC MOUTH WASH
  20. MAALOX [Concomitant]
  21. PANTOPRAZOLE [Concomitant]
     Route: 048

REACTIONS (13)
  - ACQUIRED TRACHEO-OESOPHAGEAL FISTULA [None]
  - CHEST PAIN [None]
  - COUGH [None]
  - DYSPHAGIA [None]
  - DYSPNOEA [None]
  - FAILURE TO THRIVE [None]
  - ODYNOPHAGIA [None]
  - OESOPHAGEAL STENOSIS [None]
  - OESOPHAGEAL ULCER [None]
  - RADIATION OESOPHAGITIS [None]
  - RADIATION SKIN INJURY [None]
  - SWELLING [None]
  - WEIGHT INCREASED [None]
